FAERS Safety Report 15783556 (Version 1)
Quarter: 2019Q1

REPORT INFORMATION
  Report Type: Spontaneous
  Country: FR (occurrence: FR)
  Receive Date: 20190102
  Receipt Date: 20190102
  Transmission Date: 20190417
  Serious: Yes (Life-Threatening, Hospitalization, Other)
  Sender: FDA-Public Use
  Company Number: FR-PFIZER INC-2018535073

PATIENT
  Age: 64 Year
  Sex: Female

DRUGS (11)
  1. LEXOMIL [Concomitant]
     Active Substance: BROMAZEPAM
     Dosage: 1 DF, 1X/DAY
     Route: 048
     Dates: start: 20160413, end: 201605
  2. LEPTICUR [Concomitant]
     Active Substance: TROPATEPINE HYDROCHLORIDE
     Dosage: UNK
  3. SOLIAN [Concomitant]
     Active Substance: AMISULPRIDE
     Dosage: 3 DF, 1X/DAY
     Route: 048
     Dates: start: 20160415, end: 20160422
  4. ANAFRANIL [Concomitant]
     Active Substance: CLOMIPRAMINE HYDROCHLORIDE
     Dosage: 75 MG, UNK
     Route: 048
     Dates: start: 20160415, end: 20160422
  5. VALIUM [Concomitant]
     Active Substance: DIAZEPAM
     Dosage: UNK
  6. ESTRADIOL. [Suspect]
     Active Substance: ESTRADIOL
     Indication: SALPINGO-OOPHORECTOMY
     Dosage: UNK
  7. OLANZAPINE SANDOZ [Suspect]
     Active Substance: OLANZAPINE
     Indication: MAJOR DEPRESSION
     Dosage: 1 DF, 1X/DAY
     Route: 048
     Dates: start: 20160413, end: 20160415
  8. ESTRADIOL. [Suspect]
     Active Substance: ESTRADIOL
     Indication: HYSTERECTOMY
     Dosage: UNK
     Dates: start: 2005, end: 2016
  9. SEROPLEX [Concomitant]
     Active Substance: ESCITALOPRAM OXALATE
     Indication: MENTAL DISORDER
     Dosage: 1 DF, 1X/DAY
     Route: 048
     Dates: start: 20160413, end: 20160415
  10. SEROPLEX [Concomitant]
     Active Substance: ESCITALOPRAM OXALATE
     Dosage: 1 DF, 1X/DAY
     Route: 048
     Dates: start: 20160422, end: 20160423
  11. OLANZAPINE SANDOZ [Suspect]
     Active Substance: OLANZAPINE
     Dosage: 1 DF, 1X/DAY
     Route: 048
     Dates: start: 20160422, end: 20180423

REACTIONS (11)
  - Depression [Unknown]
  - Cardiogenic shock [Unknown]
  - Cor pulmonale acute [Unknown]
  - Phlebitis [Unknown]
  - Immobile [Unknown]
  - Pulmonary embolism [Recovered/Resolved]
  - Right ventricular dilatation [Unknown]
  - Ventricular dyskinesia [Unknown]
  - Hypotension [Unknown]
  - Dyspnoea [Unknown]
  - Product use in unapproved indication [Unknown]

NARRATIVE: CASE EVENT DATE: 2016
